FAERS Safety Report 7700569-5 (Version None)
Quarter: 2011Q3

REPORT INFORMATION
  Report Type: 
  Country: None (occurrence: None)
  Receive Date: 20110822
  Receipt Date: 20110809
  Transmission Date: 20111222
  Serious: Yes (Life-Threatening)
  Sender: FDA-Public Use
  Company Number: JP-CELGENEUS-087-CCAZA-11072724

PATIENT
  Age: 70 Year
  Sex: Male

DRUGS (5)
  1. SULFAMETHOXAZOLE [Concomitant]
     Route: 065
  2. AZACITIDINE [Suspect]
     Dosage: 37.5 MILLIGRAM/SQ. METER
     Route: 041
     Dates: start: 20110627, end: 20110628
  3. MUCOSTA [Concomitant]
     Route: 065
  4. AZACITIDINE [Suspect]
     Dosage: 37.5 MILLIGRAM/SQ. METER
     Route: 041
     Dates: start: 20110620, end: 20110624
  5. MAGMITT [Concomitant]
     Route: 065

REACTIONS (1)
  - PNEUMONIA [None]
